FAERS Safety Report 25344756 (Version 1)
Quarter: 2025Q2

REPORT INFORMATION
  Report Type: Spontaneous
  Country: US (occurrence: US)
  Receive Date: 20250522
  Receipt Date: 20250522
  Transmission Date: 20250717
  Serious: No
  Sender: GILEAD
  Company Number: US-GILEAD-2025-0713954

PATIENT
  Age: 54 Year
  Sex: Male

DRUGS (1)
  1. EPCLUSA [Suspect]
     Active Substance: SOFOSBUVIR\VELPATASVIR
     Indication: Hepatitis C
     Route: 065

REACTIONS (4)
  - Vomiting [Recovering/Resolving]
  - Headache [Recovering/Resolving]
  - Drooling [Recovering/Resolving]
  - Feeling abnormal [Recovering/Resolving]
